FAERS Safety Report 18122956 (Version 1)
Quarter: 2020Q3

REPORT INFORMATION
  Report Type: Spontaneous
  Country: US (occurrence: US)
  Receive Date: 20200807
  Receipt Date: 20200807
  Transmission Date: 20201103
  Serious: No
  Sender: FDA-Public Use
  Company Number: US-RISING PHARMA HOLDINGS, INC.-2020RIS00260

PATIENT
  Age: 65 Year
  Sex: Female
  Weight: 83.9 kg

DRUGS (12)
  1. FISH OIL [Concomitant]
     Active Substance: FISH OIL
  2. WOMEN^S 1 MULTI?VITAMIN [Concomitant]
  3. ARIMIDEX [Concomitant]
     Active Substance: ANASTROZOLE
     Dosage: 1 MG, 1X/DAY
  4. AMLODIPINE [Concomitant]
     Active Substance: AMLODIPINE BESYLATE
     Dosage: 5 MG, 1X/DAY
  5. VITAMIN D [Concomitant]
     Active Substance: VITAMIN D NOS
  6. BIOTIN [Concomitant]
     Active Substance: BIOTIN
  7. PREGABALIN. [Suspect]
     Active Substance: PREGABALIN
     Indication: NEUROPATHY PERIPHERAL
     Dosage: 50 MG, 1X/DAY ^AT BEDTIME^
     Route: 048
     Dates: start: 2020
  8. NEOCELL COLLAGEN [Concomitant]
  9. CALCIUM [Concomitant]
     Active Substance: CALCIUM
  10. DIAZEPAM. [Concomitant]
     Active Substance: DIAZEPAM
     Dosage: 5 MG, 1X/DAY
  11. VITAMIN C [Concomitant]
     Active Substance: ASCORBIC ACID
  12. GLUCOSAMINE [Concomitant]
     Active Substance: GLUCOSAMINE

REACTIONS (8)
  - Feeling abnormal [Unknown]
  - Gastrooesophageal reflux disease [Not Recovered/Not Resolved]
  - Somnolence [Recovered/Resolved]
  - Nocturia [Not Recovered/Not Resolved]
  - Injury [Recovered/Resolved]
  - Pain [Unknown]
  - Drug ineffective for unapproved indication [Not Recovered/Not Resolved]
  - Costochondritis [Not Recovered/Not Resolved]

NARRATIVE: CASE EVENT DATE: 2020
